FAERS Safety Report 4423997-2 (Version None)
Quarter: 2004Q3

REPORT INFORMATION
  Report Type: 
  Country: None (occurrence: None)
  Receive Date: 20040806
  Receipt Date: 20040719
  Transmission Date: 20050211
  Serious: Yes (Life-Threatening, Hospitalization)
  Sender: FDA-Public Use
  Company Number: DE_040713971

PATIENT
  Age: 68 Year
  Sex: Female

DRUGS (5)
  1. ZYPREXA [Suspect]
     Dosage: 20 MG/DAY
     Dates: start: 20040625, end: 20040713
  2. REMERGIL (MIRTAZAPINE) [Concomitant]
  3. CITALOPRAM HYDROBROMIDE [Concomitant]
  4. DAPOTUM (FLUPHENAZINE HYDROCHLORIDE) [Concomitant]
  5. LORAZEPAM [Concomitant]

REACTIONS (2)
  - NEUROLEPTIC MALIGNANT SYNDROME [None]
  - SEROTONIN SYNDROME [None]
